FAERS Safety Report 9305610 (Version 1)
Quarter: 2013Q2

REPORT INFORMATION
  Report Type: Spontaneous
  Country: US (occurrence: None)
  Receive Date: 20130522
  Receipt Date: 20130522
  Transmission Date: 20140414
  Serious: No
  Sender: FDA-Public Use
  Company Number: None

PATIENT
  Age: 75 Year
  Sex: Male

DRUGS (1)
  1. SULFAMETHOXAZOLE RIMETHOPRIM [Suspect]

REACTIONS (4)
  - Cerebral palsy [None]
  - Condition aggravated [None]
  - Movement disorder [None]
  - Speech disorder [None]
